FAERS Safety Report 4285287-0 (Version None)
Quarter: 2004Q1

REPORT INFORMATION
  Report Type: 
  Country: None (occurrence: None)
  Receive Date: 20040202
  Receipt Date: 20040119
  Transmission Date: 20041129
  Serious: Yes (Hospitalization)
  Sender: FDA-Public Use
  Company Number: 2004003592

PATIENT
  Age: 67 Year
  Sex: Female
  Weight: 65 kg

DRUGS (6)
  1. NORVASC [Suspect]
     Indication: HYPERTENSION
     Dosage: 5 MG (DAILY), ORAL
     Route: 048
     Dates: start: 20030201
  2. FUROSEMIDE [Suspect]
     Indication: RENAL IMPAIRMENT
     Dosage: 20 MG (DAILY), ORAL
     Route: 048
     Dates: start: 20030201, end: 20030609
  3. PREDNISOLONE [Suspect]
     Indication: GLOMERULONEPHRITIS
     Dosage: 30 MG (DAILY), ORAL
     Route: 048
     Dates: start: 20030201
  4. MOXONIDINE (MOXONIDINE) [Concomitant]
  5. ENALAPRIL MALEATE [Concomitant]
  6. SIMVASTATIN (SMVASTATIN) [Concomitant]

REACTIONS (2)
  - DIABETES MELLITUS [None]
  - DRUG INTERACTION [None]
